FAERS Safety Report 6805505-1 (Version None)
Quarter: 2010Q2

REPORT INFORMATION
  Report Type: 
  Country: None (occurrence: None)
  Receive Date: 20100628
  Receipt Date: 20071220
  Transmission Date: 20101027
  Serious: No
  Sender: FDA-Public Use
  Company Number: US-PFIZER INC-2007107473

PATIENT
  Sex: Female
  Weight: 95.5 kg

DRUGS (9)
  1. GEODON [Suspect]
     Indication: BIPOLAR DISORDER
     Dates: start: 20070901
  2. PREMPRO [Concomitant]
  3. PROVIGIL [Concomitant]
  4. BENZTROPINE MESYLATE [Concomitant]
  5. TEMAZEPAM [Concomitant]
  6. PROZAC [Concomitant]
  7. LAMICTAL [Concomitant]
  8. OMEPRAZOLE [Concomitant]
  9. DRUG, UNSPECIFIED [Concomitant]

REACTIONS (1)
  - SOMNOLENCE [None]
